FAERS Safety Report 10892356 (Version 3)
Quarter: 2016Q1

REPORT INFORMATION
  Report Type: Spontaneous
  Country: US (occurrence: US)
  Receive Date: 20150306
  Receipt Date: 20160226
  Transmission Date: 20160525
  Serious: Yes (Hospitalization, Other)
  Sender: FDA-Public Use
  Company Number: US-009507513-1503USA001883

PATIENT
  Sex: Female

DRUGS (4)
  1. DULERA [Suspect]
     Active Substance: FORMOTEROL FUMARATE DIHYDRATE\MOMETASONE FUROATE
     Indication: INTERSTITIAL LUNG DISEASE
     Dosage: 2 INHALATIONS TWICE DAILY
     Route: 055
     Dates: start: 20150210, end: 20150303
  2. PREDNISONE. [Concomitant]
     Active Substance: PREDNISONE
  3. PULMICORT TURBUHALER [Concomitant]
     Active Substance: BUDESONIDE
     Indication: INTERSTITIAL LUNG DISEASE
  4. ALBUTEROL SULFATE. [Concomitant]
     Active Substance: ALBUTEROL SULFATE

REACTIONS (12)
  - Vulvovaginal mycotic infection [Not Recovered/Not Resolved]
  - Interstitial lung disease [Recovered/Resolved]
  - Seasonal allergy [Unknown]
  - Drug ineffective [Unknown]
  - Interstitial lung disease [Unknown]
  - Rash [Unknown]
  - Off label use [Unknown]
  - Asthma [Unknown]
  - Cough [Not Recovered/Not Resolved]
  - Chest discomfort [Not Recovered/Not Resolved]
  - Dysphonia [Not Recovered/Not Resolved]
  - Adverse event [Unknown]

NARRATIVE: CASE EVENT DATE: 2015
